FAERS Safety Report 8111934-9 (Version None)
Quarter: 2012Q1

REPORT INFORMATION
  Report Type: 
  Country: None (occurrence: None)
  Receive Date: 20120203
  Receipt Date: 20110610
  Transmission Date: 20120608
  Serious: No
  Sender: FDA-Public Use
  Company Number: US-GLAXOSMITHKLINE-A0931160A

PATIENT
  Age: 71 Year
  Sex: Male

DRUGS (13)
  1. GABAPENTIN [Concomitant]
  2. LEVOTHYROXINE SODIUM [Concomitant]
  3. CYMBALTA [Concomitant]
  4. ALBUTEROL [Concomitant]
  5. PANTOPRAZOLE [Concomitant]
  6. ARIXTRA [Suspect]
     Indication: PORTAL VEIN THROMBOSIS
     Dosage: 5MG PER DAY
     Route: 058
     Dates: start: 20110524
  7. LISINOPRIL [Concomitant]
  8. TERAZOSIN HCL [Concomitant]
  9. SPIRIVA [Concomitant]
  10. FLAGYL [Concomitant]
  11. ONDANSETRON HCL [Concomitant]
  12. VITAMIN D [Concomitant]
  13. LEVAQUIN [Concomitant]

REACTIONS (1)
  - EPISTAXIS [None]
